FAERS Safety Report 13738451 (Version 1)
Quarter: 2017Q3

REPORT INFORMATION
  Report Type: Spontaneous
  Country: US (occurrence: US)
  Receive Date: 20170710
  Receipt Date: 20170710
  Transmission Date: 20171127
  Serious: Yes (Other)
  Sender: FDA-Public Use
  Company Number: US-SAOL THERAPEUTICS-2016SAO01219

PATIENT
  Sex: Female

DRUGS (16)
  1. BUPIVICAINE [Suspect]
     Active Substance: BUPIVACAINE
     Dosage: 0.879 MG, \DAY
  2. CALCIUM [Concomitant]
     Active Substance: CALCIUM
  3. TRAZODONE [Concomitant]
     Active Substance: TRAZODONE HYDROCHLORIDE
  4. FLEXERIL [Concomitant]
     Active Substance: CYCLOBENZAPRINE HYDROCHLORIDE
  5. OMPERAZOLE [Concomitant]
     Active Substance: OMEPRAZOLE
  6. CUT D3 [Concomitant]
  7. DILAUDID [Suspect]
     Active Substance: HYDROMORPHONE HYDROCHLORIDE
     Dosage: 0.8 MG, \DAY
  8. CYMBALTA [Concomitant]
     Active Substance: DULOXETINE HYDROCHLORIDE
  9. BUPIVICAINE [Suspect]
     Active Substance: BUPIVACAINE
     Dosage: 8.805 ?G, \DAY
     Route: 037
  10. SYNTHROID [Concomitant]
     Active Substance: LEVOTHYROXINE SODIUM
  11. BACLOFEN. [Suspect]
     Active Substance: BACLOFEN
     Dosage: 2.077 ?G, \DAY
  12. ARAVA [Concomitant]
     Active Substance: LEFLUNOMIDE
  13. NEURONTIN [Concomitant]
     Active Substance: GABAPENTIN
  14. BACLOFEN. [Suspect]
     Active Substance: BACLOFEN
     Dosage: 20.811 ?G, \DAY
     Route: 037
  15. DILAUDID [Suspect]
     Active Substance: HYDROMORPHONE HYDROCHLORIDE
     Dosage: 8.004 MG, \DAY
     Route: 037
  16. LASIX [Concomitant]
     Active Substance: FUROSEMIDE

REACTIONS (2)
  - Pain [Recovered/Resolved]
  - Device damage [Recovered/Resolved]

NARRATIVE: CASE EVENT DATE: 2016
